FAERS Safety Report 8072882-6 (Version None)
Quarter: 2012Q1

REPORT INFORMATION
  Report Type: 
  Country: None (occurrence: None)
  Receive Date: 20120126
  Receipt Date: 20120111
  Transmission Date: 20120608
  Serious: Yes (Death)
  Sender: FDA-Public Use
  Company Number: DE-CELGENEUS-062-50794-12011135

PATIENT
  Age: 48 Year
  Sex: Male
  Weight: 80 kg

DRUGS (8)
  1. ANTI-THYMOCYTE GLOBULIN NOS [Concomitant]
     Route: 065
     Dates: start: 20101201, end: 20101205
  2. FLUDARABINE PHOSPHATE [Concomitant]
     Route: 058
     Dates: end: 20100915
  3. VIDAZA [Suspect]
     Route: 058
     Dates: end: 20100915
  4. MELPHALAN [Concomitant]
     Route: 058
     Dates: end: 20100915
  5. ANTI-THYMOCYTE GLOBULIN NOS [Concomitant]
     Route: 058
     Dates: end: 20100915
  6. VIDAZA [Suspect]
     Dosage: 144MG
     Route: 058
     Dates: start: 20100712
  7. MELPHALAN [Concomitant]
     Route: 065
     Dates: start: 20101201, end: 20101205
  8. FLUDARABINE PHOSPHATE [Concomitant]
     Route: 065
     Dates: start: 20101201, end: 20101205

REACTIONS (2)
  - SEPSIS [None]
  - MULTI-ORGAN FAILURE [None]
